FAERS Safety Report 7247071-5 (Version None)
Quarter: 2011Q1

REPORT INFORMATION
  Report Type: 
  Country: None (occurrence: None)
  Receive Date: 20110127
  Receipt Date: 20110121
  Transmission Date: 20110831
  Serious: Yes (Hospitalization)
  Sender: FDA-Public Use
  Company Number: US-B.I. PHARMACEUTICALS,INC./RIDGEFIELD-2011-BP-01511BP

PATIENT
  Sex: Female

DRUGS (8)
  1. MELOXICAM [Concomitant]
     Indication: MUSCULOSKELETAL DISCOMFORT
  2. ADVAIR [Concomitant]
     Indication: EMPHYSEMA
  3. SYNTHROID [Concomitant]
     Indication: HYPOTHYROIDISM
  4. SPIRIVA [Suspect]
     Indication: EMPHYSEMA
     Dosage: 18 MCG
     Route: 055
     Dates: start: 20080101
  5. ATROVENT [Concomitant]
     Indication: EMPHYSEMA
     Dates: start: 20090101
  6. PREVACID [Concomitant]
     Indication: GASTROOESOPHAGEAL REFLUX DISEASE
  7. SINGULAIR [Concomitant]
     Indication: EMPHYSEMA
  8. XOPENEX [Concomitant]
     Indication: EMPHYSEMA

REACTIONS (4)
  - TACHYCARDIA [None]
  - BLOOD CHOLESTEROL INCREASED [None]
  - EMPHYSEMA [None]
  - DEPRESSION [None]
